FAERS Safety Report 13388680 (Version 1)
Quarter: 2017Q1

REPORT INFORMATION
  Report Type: Spontaneous
  Country: DE (occurrence: DE)
  Receive Date: 20170330
  Receipt Date: 20170330
  Transmission Date: 20170429
  Serious: Yes (Hospitalization, Other)
  Sender: FDA-Public Use
  Company Number: DE-BRISTOL-MYERS SQUIBB COMPANY-BMS-2017-025758

PATIENT
  Age: 87 Year
  Sex: Female

DRUGS (3)
  1. RHYTHMONORM [Concomitant]
     Indication: PRODUCT USED FOR UNKNOWN INDICATION
     Dosage: 1 DF, UNK
     Route: 065
  2. GLUCOPHAGE [Suspect]
     Active Substance: METFORMIN HYDROCHLORIDE
     Indication: PRODUCT USED FOR UNKNOWN INDICATION
     Dosage: 1 DF, QD
     Route: 065
  3. GLUCOPHAGE [Suspect]
     Active Substance: METFORMIN HYDROCHLORIDE
     Indication: PRODUCT USED FOR UNKNOWN INDICATION
     Dosage: 1 DF, QD RESTARTED
     Route: 065
     Dates: start: 20170303

REACTIONS (9)
  - Pruritus [Unknown]
  - Rash [Unknown]
  - Weight decreased [Unknown]
  - Headache [Unknown]
  - Abdominal discomfort [Unknown]
  - Drug dose omission [Unknown]
  - Abdominal pain [Unknown]
  - Cardiac operation [Unknown]
  - Rash pustular [Unknown]

NARRATIVE: CASE EVENT DATE: 201703
